FAERS Safety Report 18363580 (Version 3)
Quarter: 2021Q1

REPORT INFORMATION
  Report Type: Spontaneous
  Country: JP (occurrence: JP)
  Receive Date: 20201009
  Receipt Date: 20210108
  Transmission Date: 20210419
  Serious: Yes (Other)
  Sender: FDA-Public Use
  Company Number: JP-BRISTOL-MYERS SQUIBB COMPANY-BMS-2020-082983

PATIENT
  Age: 67 Year
  Sex: Male

DRUGS (1)
  1. OPDIVO [Suspect]
     Active Substance: NIVOLUMAB
     Indication: MALIGNANT NEOPLASM OF UNKNOWN PRIMARY SITE
     Dosage: UNK
     Route: 041
     Dates: start: 20200916, end: 20201007

REACTIONS (2)
  - Liver disorder [Unknown]
  - Angle closure glaucoma [Recovering/Resolving]

NARRATIVE: CASE EVENT DATE: 20201001
